FAERS Safety Report 7265603-8 (Version None)
Quarter: 2011Q1

REPORT INFORMATION
  Report Type: 
  Country: None (occurrence: None)
  Receive Date: 20110131
  Receipt Date: 20100908
  Transmission Date: 20110831
  Serious: Yes (Hospitalization, Other)
  Sender: FDA-Public Use
  Company Number: US-BAYER-201022584NA

PATIENT
  Sex: Female
  Weight: 106.58 kg

DRUGS (21)
  1. SYMBICORT [Concomitant]
  2. OCELLA [Suspect]
     Indication: PRODUCT USED FOR UNKNOWN INDICATION
  3. NAPROXEN [Concomitant]
  4. RANITIDINE HYDROCHLORIDE [Concomitant]
     Dosage: 150 MG, PRN
  5. ZANTAC [Concomitant]
     Dosage: 150 MG, PRN
  6. IBUPROFEN [Concomitant]
  7. HYDROCHLOROTHIAZIDE [Concomitant]
     Dosage: 12.5 MG, CONT
  8. PREVACID [Concomitant]
     Dosage: 30 MG, BID
  9. BENICAR HCT [Concomitant]
     Dosage: UNK UNK, CONT
     Route: 048
  10. PHENERGAN HCL [Concomitant]
     Dosage: 25 MG, QID
  11. VENTOLIN [Concomitant]
  12. ZEGERID [Concomitant]
     Dosage: UNK UNK, CONT
  13. YAZ [Suspect]
     Indication: PREMENSTRUAL SYNDROME
     Dosage: UNK
     Route: 048
     Dates: start: 20070101, end: 20080101
  14. MOTRIN [Concomitant]
  15. HYDROCODONE [Concomitant]
     Dosage: UNK UNK, PRN
     Route: 048
  16. UNCODEABLE ^UNCLASSIFIABLE^ [Concomitant]
     Dosage: UNK UNK, PRN
  17. NEXIUM [Concomitant]
     Dosage: 40 MG, CONT
  18. LISINOPRIL [Concomitant]
     Dosage: 20 MG, CONT
  19. MICARDIS HCT [Concomitant]
     Dosage: 80 MG, UNK
  20. YASMIN [Suspect]
     Indication: PREMENSTRUAL SYNDROME
     Dosage: UNK
     Route: 048
     Dates: start: 20070101, end: 20080101
  21. ALBUTEROL [Concomitant]
     Dosage: UNK UNK, PRN

REACTIONS (7)
  - BILIARY DYSKINESIA [None]
  - ABDOMINAL PAIN UPPER [None]
  - CHOLECYSTITIS [None]
  - MENTAL DISORDER [None]
  - NAUSEA [None]
  - INJURY [None]
  - ABDOMINAL DISTENSION [None]
